FAERS Safety Report 7803150-2 (Version None)
Quarter: 2011Q4

REPORT INFORMATION
  Report Type: 
  Country: None (occurrence: None)
  Receive Date: 20111007
  Receipt Date: 20101022
  Transmission Date: 20120403
  Serious: No
  Sender: FDA-Public Use
  Company Number: US-ABBOTT-10P-163-0680979-00

PATIENT
  Sex: Male
  Weight: 77.18 kg

DRUGS (3)
  1. SUSTIVA [Concomitant]
     Indication: HIV INFECTION
  2. TRUVADA [Concomitant]
     Indication: HIV INFECTION
  3. KALETRA [Suspect]
     Indication: HIV INFECTION
     Route: 048
     Dates: start: 19990101

REACTIONS (5)
  - WEIGHT INCREASED [None]
  - DIABETES MELLITUS [None]
  - LIPOHYPERTROPHY [None]
  - DIARRHOEA [None]
  - NAUSEA [None]
